FAERS Safety Report 4360538-2 (Version None)
Quarter: 2004Q2

REPORT INFORMATION
  Report Type: 
  Country: None (occurrence: None)
  Receive Date: 20040519
  Receipt Date: 20040506
  Transmission Date: 20050107
  Serious: Yes (Life-Threatening, Hospitalization, Disabling)
  Sender: FDA-Public Use
  Company Number: GB-GLAXOSMITHKLINE-B0332105A

PATIENT
  Age: 69 Year
  Sex: Female

DRUGS (9)
  1. DIGOXIN [Suspect]
     Indication: BRADYCARDIA
     Dosage: 125MCG PER DAY
     Route: 065
  2. SPIRONOLACTONE [Suspect]
     Indication: HYPERKALAEMIA
     Dosage: 25MG PER DAY
     Route: 065
  3. AMITRIPTYLINE HCL [Suspect]
     Dosage: 75MG AT NIGHT
     Route: 065
  4. ENALAPRIL MALEATE [Suspect]
     Dosage: 10MG PER DAY
     Route: 065
  5. WARFARIN SODIUM [Concomitant]
     Route: 065
  6. THYROXINE [Concomitant]
     Dosage: 25MCG PER DAY
     Route: 065
  7. BUMETANIDE [Concomitant]
     Dosage: 3MG PER DAY
     Route: 065
  8. BACLOFEN [Concomitant]
     Dosage: 10MG THREE TIMES PER DAY
     Route: 065
  9. TETRABENAZINE [Concomitant]
     Dosage: 12.5MG TWICE PER DAY
     Route: 065

REACTIONS (4)
  - BRADYCARDIA [None]
  - ELECTROCARDIOGRAM CHANGE [None]
  - HYPERKALAEMIA [None]
  - RENAL FAILURE ACUTE [None]
